FAERS Safety Report 4592652-0 (Version None)
Quarter: 2005Q1

REPORT INFORMATION
  Report Type: 
  Country: None (occurrence: None)
  Receive Date: 20050228
  Receipt Date: 20050203
  Transmission Date: 20050727
  Serious: Yes (Hospitalization, Other)
  Sender: FDA-Public Use
  Company Number: JP-NOVOPROD-242112

PATIENT
  Age: 58 Year
  Sex: Male
  Weight: 51 kg

DRUGS (5)
  1. NOVOLIN N [Suspect]
     Indication: INSULIN-REQUIRING TYPE II DIABETES MELLITUS
     Dosage: 6-8
     Route: 058
     Dates: start: 20040512, end: 20040609
  2. KINEDAK [Concomitant]
     Dosage: 300 MG, UNK
     Route: 048
     Dates: start: 20040527
  3. GLIMICRON [Concomitant]
     Dosage: 160 MG, UNK
     Route: 048
     Dates: start: 20000101, end: 20040511
  4. NOVORAPID CHU FLEXPEN [Suspect]
     Indication: INSULIN-REQUIRING TYPE II DIABETES MELLITUS
     Dosage: 10-21
     Route: 058
     Dates: start: 20040601, end: 20040609
  5. NOVOLIN R [Suspect]
     Indication: INSULIN-REQUIRING TYPE II DIABETES MELLITUS
     Dosage: 32-42
     Route: 058
     Dates: start: 20040610, end: 20040617

REACTIONS (2)
  - BLOOD GLUCOSE INCREASED [None]
  - HEPATIC ENZYME INCREASED [None]
